FAERS Safety Report 19200720 (Version 1)
Quarter: 2021Q2

REPORT INFORMATION
  Report Type: Spontaneous
  Country: US (occurrence: US)
  Receive Date: 20210430
  Receipt Date: 20210430
  Transmission Date: 20210717
  Serious: Yes (Hospitalization)
  Sender: FDA-Public Use
  Company Number: None

PATIENT
  Age: 50 Year
  Sex: Male
  Weight: 94.6 kg

DRUGS (16)
  1. TESTOSTERONE 1.62% TRANSDERMAL GEL [Concomitant]
     Dates: start: 20201104
  2. CLARINEX 5MG [Concomitant]
  3. GABAPENTIN 300MG [Concomitant]
     Active Substance: GABAPENTIN
  4. ADAKVEO [Suspect]
     Active Substance: CRIZANLIZUMAB-TMCA
     Indication: SICKLE CELL DISEASE
     Dosage: ?          OTHER FREQUENCY:ONCE MONTHLY;?
     Route: 042
     Dates: start: 20200923, end: 20210401
  5. HYDROCORTISONE 5MG [Concomitant]
     Dates: start: 20200220
  6. OXBRYTA 1500MG [Concomitant]
     Dates: start: 20191029
  7. COLACE [Concomitant]
     Active Substance: DOCUSATE SODIUM
  8. VOLTAREN 1% TRANSDERMAL GEL [Concomitant]
  9. ASA 81MG [Concomitant]
     Active Substance: ASPIRIN
  10. FOLIC ACID 1MG [Concomitant]
     Active Substance: FOLIC ACID
  11. METHADONE [Concomitant]
     Active Substance: METHADONE HYDROCHLORIDE
  12. VITAMIN D 50MCG [Concomitant]
  13. COREG 6.25MG [Concomitant]
     Dates: start: 20190717
  14. HYDREA 1000MG [Concomitant]
  15. PEPCID 20MG [Concomitant]
  16. OMEPRAZOLE 20MG [Concomitant]
     Active Substance: OMEPRAZOLE

REACTIONS (4)
  - Pain [None]
  - Sickle cell anaemia with crisis [None]
  - Therapy cessation [None]
  - Myalgia [None]

NARRATIVE: CASE EVENT DATE: 20201228
